FAERS Safety Report 4609066-7 (Version None)
Quarter: 2005Q1

REPORT INFORMATION
  Report Type: 
  Country: None (occurrence: None)
  Receive Date: 20050311
  Receipt Date: 20050307
  Transmission Date: 20050727
  Serious: Yes (Hospitalization, Other)
  Sender: FDA-Public Use
  Company Number: KII-2005-0015433

PATIENT
  Age: 52 Year
  Sex: Female

DRUGS (3)
  1. HYDROMORPHONE HCL (SIMILAR TO NDA 21-044)(HYDROMORPHONE HYDROCHLORIDE) [Suspect]
     Indication: PAIN
     Dosage: SEE TEXT, INTRAVENOUS
     Route: 042
  2. MORPHINE SULFATE [Suspect]
     Indication: PAIN
     Dosage: SEE TEXT, INTRAVENOUS
     Route: 042
  3. CLONIDINE [Suspect]
     Indication: PAIN
     Dosage: SEE TEXT, INTRAVENOUS
     Route: 042

REACTIONS (6)
  - BLOOD PRESSURE DECREASED [None]
  - COMA [None]
  - RASH [None]
  - SINUS BRADYCARDIA [None]
  - SOMNOLENCE [None]
  - TREMOR [None]
